FAERS Safety Report 5536767-9 (Version None)
Quarter: 2007Q4

REPORT INFORMATION
  Report Type: 
  Country: None (occurrence: None)
  Receive Date: 20071206
  Receipt Date: 20070516
  Transmission Date: 20080405
  Serious: Yes (Other)
  Sender: FDA-Public Use
  Company Number: US-AMGEN-STX222763

PATIENT
  Sex: Female

DRUGS (14)
  1. ENBREL [Suspect]
     Indication: RHEUMATOID ARTHRITIS
     Route: 058
     Dates: start: 20000223, end: 20020501
  2. CELEBREX [Concomitant]
  3. ACTONEL [Concomitant]
  4. HORMONE NOS [Concomitant]
  5. CALCIUM [Concomitant]
  6. VITAMIN CAP [Concomitant]
  7. PREDNISONE TAB [Concomitant]
  8. MINIPRESS [Concomitant]
  9. ACCUPRIL [Concomitant]
  10. COREG [Concomitant]
  11. ARAVA [Concomitant]
     Dates: end: 20010726
  12. CYTOTEC [Concomitant]
  13. ASPIRIN [Concomitant]
  14. METHOTREXATE [Concomitant]

REACTIONS (9)
  - CARDIAC FAILURE CONGESTIVE [None]
  - HERPES ZOSTER [None]
  - LEUKOPENIA [None]
  - LUMBAR SPINAL STENOSIS [None]
  - MERALGIA PARAESTHETICA [None]
  - SPINAL COMPRESSION FRACTURE [None]
  - SPONDYLOLISTHESIS [None]
  - SURGERY [None]
  - SYNOVITIS [None]
